FAERS Safety Report 6032974-X (Version None)
Quarter: 2009Q1

REPORT INFORMATION
  Report Type: 
  Country: None (occurrence: None)
  Receive Date: 20090109
  Receipt Date: 20090108
  Transmission Date: 20090719
  Serious: Yes (Other)
  Sender: FDA-Public Use
  Company Number: A0762680A

PATIENT
  Age: 46 Year
  Sex: Female

DRUGS (2)
  1. ADVAIR DISKUS 250/50 [Suspect]
     Indication: ASTHMA
     Dosage: 1PUFF TWICE PER DAY
     Route: 055
     Dates: start: 20030101
  2. AMOXICILLIN [Concomitant]

REACTIONS (3)
  - EYE HAEMORRHAGE [None]
  - EYE PAIN [None]
  - VASCULAR INJURY [None]
